FAERS Safety Report 24411039 (Version 3)
Quarter: 2024Q4

REPORT INFORMATION
  Report Type: Spontaneous
  Country: CN (occurrence: CN)
  Receive Date: 20241008
  Receipt Date: 20241021
  Transmission Date: 20250114
  Serious: Yes (Death)
  Sender: PFIZER
  Company Number: CN-PFIZER INC-PV202400129342

PATIENT
  Age: 37 Year
  Sex: Male

DRUGS (7)
  1. MEROPENEM [Suspect]
     Active Substance: MEROPENEM
     Indication: Meningitis listeria
     Dosage: 0.5 G, 3X/DAY (EVERY 8 HOURS)
  2. MEROPENEM [Suspect]
     Active Substance: MEROPENEM
     Indication: Encephalitis
  3. METHYLPREDNISOLONE [Suspect]
     Active Substance: METHYLPREDNISOLONE
     Indication: Encephalitis
     Dosage: 40 MG, 1X/DAY
  4. VANCOMYCIN [Suspect]
     Active Substance: VANCOMYCIN
     Indication: Meningitis listeria
     Dosage: 0.5 G, 3X/DAY (EVERY 8 HOURS)
     Route: 042
  5. VANCOMYCIN [Suspect]
     Active Substance: VANCOMYCIN
     Indication: Encephalitis
  6. RIFAMPIN [Suspect]
     Active Substance: RIFAMPIN
     Indication: Meningitis listeria
     Dosage: UNK
  7. MANNITOL [Suspect]
     Active Substance: MANNITOL
     Indication: Encephalitis
     Dosage: 125 ML, 3X/DAY (EVERY 8 HOURS)

REACTIONS (3)
  - Drug ineffective [Fatal]
  - Hypotension [Fatal]
  - Off label use [Unknown]
